FAERS Safety Report 4428539-3 (Version None)
Quarter: 2004Q3

REPORT INFORMATION
  Report Type: 
  Country: None (occurrence: None)
  Receive Date: 20040818
  Receipt Date: 20040809
  Transmission Date: 20050211
  Serious: Yes (Hospitalization)
  Sender: FDA-Public Use
  Company Number: US-JNJFOC-20040403390

PATIENT
  Sex: Male
  Weight: 68.04 kg

DRUGS (9)
  1. DURAGESIC [Suspect]
     Route: 062
  2. DURAGESIC [Suspect]
     Route: 062
  3. DURAGESIC [Suspect]
     Route: 062
  4. PERCOCET [Concomitant]
     Route: 049
     Dates: start: 20040101
  5. PERCOCET [Concomitant]
     Indication: PAIN
     Route: 049
     Dates: start: 20040101
  6. VALIUM [Concomitant]
     Indication: ANXIETY
     Route: 049
     Dates: start: 20040101
  7. PROZAC [Concomitant]
  8. NEURONTIN [Concomitant]
  9. AMBIEN [Concomitant]

REACTIONS (22)
  - ASTHENIA [None]
  - ATELECTASIS [None]
  - BLOOD PRESSURE INCREASED [None]
  - CHEST PAIN [None]
  - CHEST WALL PAIN [None]
  - CONFUSIONAL STATE [None]
  - CONTUSION [None]
  - COUGH [None]
  - DYSARTHRIA [None]
  - DYSURIA [None]
  - FALL [None]
  - GASTROOESOPHAGEAL REFLUX DISEASE [None]
  - HEADACHE [None]
  - HIATUS HERNIA [None]
  - LOSS OF CONSCIOUSNESS [None]
  - MELAENA [None]
  - NAUSEA [None]
  - PANIC ATTACK [None]
  - PERICARDIAL EFFUSION [None]
  - PLEURAL EFFUSION [None]
  - RECTAL POLYP [None]
  - RIB FRACTURE [None]
